FAERS Safety Report 4662283-2 (Version None)
Quarter: 2005Q2

REPORT INFORMATION
  Report Type: 
  Country: None (occurrence: None)
  Receive Date: 20050512
  Receipt Date: 20050422
  Transmission Date: 20051028
  Serious: Yes (Other)
  Sender: FDA-Public Use
  Company Number: USA050188142

PATIENT
  Age: 73 Year
  Sex: Male
  Weight: 82 kg

DRUGS (7)
  1. ALIMTA [Suspect]
     Indication: NON-SMALL CELL LUNG CANCER STAGE IV
     Dosage: 990 MG OTHER
     Route: 050
     Dates: start: 20041216
  2. FOLIC ACID [Concomitant]
  3. VITAMIN B-12 [Concomitant]
  4. DEXAMETHASONE [Concomitant]
  5. PRILOSEC (OMEPRAZOLE RATIOPHARM) [Concomitant]
  6. PROCHLORPERAZINE [Concomitant]
  7. SALSALATE [Concomitant]

REACTIONS (13)
  - ANOREXIA [None]
  - BLISTER [None]
  - DEHYDRATION [None]
  - DISEASE PROGRESSION [None]
  - ERYTHEMA [None]
  - GASTROENTERITIS [None]
  - NAUSEA [None]
  - NON-SMALL CELL LUNG CANCER [None]
  - OEDEMA PERIPHERAL [None]
  - PYREXIA [None]
  - SKIN EXFOLIATION [None]
  - VIRAL INFECTION [None]
  - VOMITING [None]
